FAERS Safety Report 7327626-X (Version None)
Quarter: 2011Q1

REPORT INFORMATION
  Report Type: 
  Country: None (occurrence: None)
  Receive Date: 20110303
  Receipt Date: 20110224
  Transmission Date: 20110831
  Serious: Yes (Other)
  Sender: FDA-Public Use
  Company Number: DE-TEVA-268945GER

PATIENT

DRUGS (1)
  1. ACICLOVIR-RATIOPHARM 500MG P.I. [Suspect]

REACTIONS (3)
  - INFUSION SITE SWELLING [None]
  - INFUSION SITE ERYTHEMA [None]
  - INCORRECT ROUTE OF DRUG ADMINISTRATION [None]
